FAERS Safety Report 10081925 (Version 1)
Quarter: 2014Q2

REPORT INFORMATION
  Report Type: Spontaneous
  Country: US (occurrence: None)
  Receive Date: 20140415
  Receipt Date: 20140415
  Transmission Date: 20141212
  Serious: Yes (Other)
  Sender: FDA-Public Use
  Company Number: None

PATIENT
  Age: 69 Year
  Sex: Male

DRUGS (1)
  1. ZYTIGA 250 MG TAKE 4 DAILY [Suspect]
     Indication: PRODUCT USED FOR UNKNOWN INDICATION
     Dosage: 250 MG TAKE 4 DAILY DAILY ORAL
     Route: 048
     Dates: start: 20120714

REACTIONS (1)
  - Dyspnoea [None]
